FAERS Safety Report 8224978-3 (Version None)
Quarter: 2012Q1

REPORT INFORMATION
  Report Type: 
  Country: None (occurrence: None)
  Receive Date: 20120321
  Receipt Date: 20120316
  Transmission Date: 20120608
  Serious: Yes (Other)
  Sender: FDA-Public Use
  Company Number: US-PFIZER INC-2012065328

PATIENT
  Sex: Female
  Weight: 53.061 kg

DRUGS (7)
  1. MS CONTIN [Concomitant]
     Dosage: 60 MG, UNK
  2. CLONIDINE [Concomitant]
     Indication: HYPERTENSION
     Dosage: UNK
  3. LYRICA [Suspect]
     Dosage: UNK
     Route: 048
     Dates: start: 20120101, end: 20120101
  4. MORPHINE [Concomitant]
     Dosage: 30 MG, UNK
  5. LYRICA [Suspect]
     Indication: MUSCULOSKELETAL PAIN
     Dosage: 45 MG, 2X/DAY
     Route: 048
     Dates: start: 20120101, end: 20120101
  6. LYRICA [Suspect]
     Indication: PAIN IN EXTREMITY
     Dosage: 75 MG, 2X/DAY
     Route: 048
     Dates: start: 20120101, end: 20120101
  7. MOTRIN [Concomitant]
     Dosage: UNK

REACTIONS (9)
  - OSTEOPOROSIS [None]
  - GAIT DISTURBANCE [None]
  - SOMNOLENCE [None]
  - WEIGHT INCREASED [None]
  - ACTIVITIES OF DAILY LIVING IMPAIRED [None]
  - DRUG INEFFECTIVE [None]
  - NEUROPATHY PERIPHERAL [None]
  - MALAISE [None]
  - FEELING ABNORMAL [None]
